FAERS Safety Report 9527697 (Version 1)
Quarter: 2013Q3

REPORT INFORMATION
  Report Type: Spontaneous
  Country: US (occurrence: None)
  Receive Date: 20130913
  Receipt Date: 20130913
  Transmission Date: 20140515
  Serious: Yes (Other)
  Sender: FDA-Public Use
  Company Number: None

PATIENT
  Age: 30 Year
  Sex: Male
  Weight: 79.38 kg

DRUGS (1)
  1. TROPICAMIDE 0.5% [Suspect]
     Indication: PUPIL DILATION PROCEDURE
     Dosage: AS NEEDED INTO THE EYES
     Route: 031
     Dates: start: 20130911, end: 20130911

REACTIONS (3)
  - Heart rate increased [None]
  - Palpitations [None]
  - Chest discomfort [None]
